FAERS Safety Report 17015962 (Version 2)
Quarter: 2019Q4

REPORT INFORMATION
  Report Type: Report from Study
  Country: US (occurrence: US)
  Receive Date: 20191111
  Receipt Date: 20191127
  Transmission Date: 20200122
  Serious: Yes (Death)
  Sender: FDA-Public Use
  Company Number: US-PFIZER INC-2019484988

PATIENT
  Age: 61 Year
  Sex: Female

DRUGS (2)
  1. FLUOXETINE [Suspect]
     Active Substance: FLUOXETINE HYDROCHLORIDE
     Dosage: UNK
  2. DILTIAZEM HCL [Suspect]
     Active Substance: DILTIAZEM HYDROCHLORIDE
     Dosage: UNK

REACTIONS (9)
  - Depressed level of consciousness [Fatal]
  - Toxicity to various agents [Fatal]
  - Tachycardia [Fatal]
  - Coma [Fatal]
  - Hypotension [Fatal]
  - Hypertension [Fatal]
  - Seizure [Fatal]
  - Metabolic acidosis [Fatal]
  - Bradycardia [Fatal]

NARRATIVE: CASE EVENT DATE: 2018
